FAERS Safety Report 11982193 (Version 1)
Quarter: 2016Q1

REPORT INFORMATION
  Report Type: Spontaneous
  Country: US (occurrence: US)
  Receive Date: 20160201
  Receipt Date: 20160201
  Transmission Date: 20160526
  Serious: No
  Sender: FDA-Public Use
  Company Number: US-ASTRAZENECA-2016SE07954

PATIENT
  Age: 20023 Day
  Sex: Female
  Weight: 120.7 kg

DRUGS (1)
  1. BYDUREON [Suspect]
     Active Substance: EXENATIDE
     Indication: TYPE 2 DIABETES MELLITUS
     Route: 058

REACTIONS (5)
  - Blood cholesterol increased [Unknown]
  - Rash [Not Recovered/Not Resolved]
  - Injection site pain [Unknown]
  - Hypertension [Unknown]
  - Back disorder [Unknown]

NARRATIVE: CASE EVENT DATE: 20160120
